FAERS Safety Report 4620232-7 (Version None)
Quarter: 2005Q1

REPORT INFORMATION
  Report Type: 
  Country: None (occurrence: None)
  Receive Date: 20050321
  Receipt Date: 20050321
  Transmission Date: 20050727
  Serious: Yes (Other)
  Sender: FDA-Public Use
  Company Number: None

PATIENT
  Age: 37 Year
  Sex: Female
  Weight: 77.1115 kg

DRUGS (1)
  1. EFFEXOR XR [Suspect]
     Indication: DEPRESSION
     Dosage: 1  DAILY
     Dates: start: 20040202, end: 20050304

REACTIONS (2)
  - DRUG WITHDRAWAL SYNDROME [None]
  - FEELING ABNORMAL [None]
